FAERS Safety Report 19640331 (Version 1)
Quarter: 2021Q3

REPORT INFORMATION
  Report Type: Spontaneous
  Country: US (occurrence: US)
  Receive Date: 20210730
  Receipt Date: 20210730
  Transmission Date: 20211014
  Serious: No
  Sender: FDA-Public Use
  Company Number: US-DENTSPLY PHARMACEUTICAL-2020SCDP000357

PATIENT
  Sex: Female

DRUGS (3)
  1. LIDOCAINE HCL [Suspect]
     Active Substance: LIDOCAINE HYDROCHLORIDE
     Indication: ANAESTHESIA
     Dosage: 3?5 ML RESTYLANE+REG; LIDOCAINE AND/OR RESTYLANE LYFT LIDOCAINE (HYALURONIC ACID FILLERS WITH LIDOCA
  2. HYALURONIC ACID [Concomitant]
     Active Substance: HYALURONIC ACID
     Indication: ANAPHYLAXIS TREATMENT
  3. HYALURONIC ACID [Concomitant]
     Active Substance: HYALURONIC ACID
     Indication: DERMATOSIS
     Dosage: HYALURONIC ACID FILLERS WITH LIDOCAINE

REACTIONS (3)
  - Contusion [Unknown]
  - Pain [Unknown]
  - Tenderness [Unknown]
